FAERS Safety Report 8729902 (Version 2)
Quarter: 2012Q4

REPORT INFORMATION
  Report Type: 
  Country: US (occurrence: US)
  Receive Date: 20120817
  Receipt Date: 20120927
  Transmission Date: 20130627
  Serious: Yes (Congenital Anomaly)
  Sender: FDA-Public Use
  Company Number: US-GLAXOSMITHKLINE-A0989909A

PATIENT
  Sex: Male

DRUGS (1)
  1. PAXIL [Suspect]
     Indication: BIPOLAR DISORDER
     Route: 064
     Dates: start: 200212

REACTIONS (3)
  - Plagiocephaly [Unknown]
  - Juvenile idiopathic arthritis [Unknown]
  - Foetal exposure during pregnancy [Unknown]
